FAERS Safety Report 6432673-6 (Version None)
Quarter: 2009Q4

REPORT INFORMATION
  Report Type: 
  Country: None (occurrence: None)
  Receive Date: 20091109
  Receipt Date: 20091030
  Transmission Date: 20100525
  Serious: Yes (Hospitalization, Other)
  Sender: FDA-Public Use
  Company Number: GXKR2009IT11966

PATIENT
  Age: 26 Year
  Sex: Male

DRUGS (1)
  1. METHYLPREDNISOLONE [Suspect]
     Indication: DISORDER OF ORBIT
     Dosage: 1000 MG, DAILY
     Route: 042

REACTIONS (9)
  - COUGH [None]
  - ELECTROCARDIOGRAM T WAVE INVERSION [None]
  - HEART RATE DECREASED [None]
  - ORAL MUCOSAL ERYTHEMA [None]
  - PAIN IN JAW [None]
  - PHARYNGITIS [None]
  - SENSATION OF FOREIGN BODY [None]
  - SINUS RHYTHM [None]
  - SPUTUM DISCOLOURED [None]
